FAERS Safety Report 13604052 (Version 1)
Quarter: 2017Q2

REPORT INFORMATION
  Report Type: Report from Study
  Country: US (occurrence: US)
  Receive Date: 20170602
  Receipt Date: 20170602
  Transmission Date: 20170830
  Serious: No
  Sender: FDA-Public Use
  Company Number: PHEH2017US016234

PATIENT
  Sex: Male
  Weight: 114.74 kg

DRUGS (1)
  1. COSENTYX [Suspect]
     Active Substance: SECUKINUMAB
     Indication: PRODUCT USED FOR UNKNOWN INDICATION
     Dosage: QMO (EVERY 4 WEEKS)
     Route: 058
     Dates: start: 20170208, end: 20170424

REACTIONS (2)
  - Fatigue [Unknown]
  - Urine odour abnormal [Unknown]
